FAERS Safety Report 8883343 (Version 6)
Quarter: 2013Q2

REPORT INFORMATION
  Report Type: Spontaneous
  Country: US (occurrence: US)
  Receive Date: 20121102
  Receipt Date: 20130423
  Transmission Date: 20140414
  Serious: Yes (Hospitalization, Disabling, Other)
  Sender: FDA-Public Use
  Company Number: US-009507513-1210USA010388

PATIENT
  Sex: Female

DRUGS (5)
  1. FOSAMAX [Suspect]
     Indication: OSTEOPOROSIS
     Dosage: 70 MG, QW
     Route: 048
     Dates: start: 2001, end: 2009
  2. ALENDRONATE SODIUM [Suspect]
     Indication: OSTEOPOROSIS
     Dosage: 70 MG, QW
     Route: 048
     Dates: start: 2009, end: 201108
  3. ALENDRONATE SODIUM [Suspect]
     Indication: OSTEOPENIA
  4. KLOR-CON [Concomitant]
     Dosage: 10 MEQ, Q4H
     Route: 048
     Dates: start: 2004
  5. EVISTA [Concomitant]
     Indication: OSTEOPOROSIS
     Dosage: 60 MG, QD
     Route: 048
     Dates: start: 1999

REACTIONS (41)
  - Femur fracture [Not Recovered/Not Resolved]
  - Open reduction of fracture [Unknown]
  - Femur fracture [Unknown]
  - Intramedullary rod insertion [Unknown]
  - Low turnover osteopathy [Not Recovered/Not Resolved]
  - Oesophagogastroduodenoscopy [Unknown]
  - Adenotonsillectomy [Unknown]
  - Appendicectomy [Unknown]
  - Ureteroscopy [Unknown]
  - Salpingo-oophorectomy bilateral [Unknown]
  - Fall [Unknown]
  - Hysterectomy [Unknown]
  - Lipoma excision [Unknown]
  - Blood pressure increased [Unknown]
  - Nephrolithiasis [Unknown]
  - Pain [Unknown]
  - Nasopharyngitis [Unknown]
  - Infection [Unknown]
  - Inflammation [Unknown]
  - Poor quality sleep [Unknown]
  - Diabetes mellitus [Unknown]
  - Sinusitis [Unknown]
  - Hypokalaemia [Unknown]
  - Bursitis [Unknown]
  - Intervertebral disc protrusion [Unknown]
  - Exostosis [Unknown]
  - Intervertebral disc degeneration [Unknown]
  - Diverticulum intestinal [Unknown]
  - Joint dislocation [Unknown]
  - Endometriosis [Unknown]
  - Laparoscopy [Unknown]
  - Arthroscopy [Unknown]
  - Anxiety [Unknown]
  - Pollakiuria [Unknown]
  - Restless legs syndrome [Unknown]
  - Dyspnoea [Unknown]
  - Pruritus [Unknown]
  - Constipation [Unknown]
  - Drug ineffective [Unknown]
  - Gastrooesophageal reflux disease [Unknown]
  - Muscle spasms [Unknown]
